FAERS Safety Report 14839902 (Version 2)
Quarter: 2018Q2

REPORT INFORMATION
  Report Type: Report from Study
  Country: None (occurrence: US)
  Receive Date: 20180503
  Receipt Date: 20180517
  Transmission Date: 20180711
  Serious: Yes (Hospitalization, Other)
  Sender: FDA-Public Use
  Company Number: US-ABBVIE-18K-163-2329761-00

PATIENT
  Age: 22 Year
  Sex: Female
  Weight: 62.2 kg

DRUGS (6)
  1. VITAMIN B12 [Concomitant]
     Active Substance: CYANOCOBALAMIN
     Indication: VITAMIN SUPPLEMENTATION
  2. PROGESTERONE. [Concomitant]
     Active Substance: PROGESTERONE
     Indication: MENSTRUAL DISORDER
  3. PRENATAL VITAMINS [Concomitant]
     Active Substance: VITAMINS
     Indication: VITAMIN SUPPLEMENTATION
  4. HUMIRA [Suspect]
     Active Substance: ADALIMUMAB
     Route: 058
     Dates: start: 201710, end: 201804
  5. HUMIRA [Suspect]
     Active Substance: ADALIMUMAB
     Indication: CROHN^S DISEASE
     Route: 058
     Dates: start: 2015, end: 2015
  6. FOLIC ACID. [Concomitant]
     Active Substance: FOLIC ACID
     Indication: VITAMIN SUPPLEMENTATION

REACTIONS (6)
  - Procedural pain [Recovering/Resolving]
  - Post procedural haemorrhage [Recovered/Resolved]
  - Adenoiditis [Recovered/Resolved]
  - Tonsillitis [Recovered/Resolved]
  - Blood disorder [Recovering/Resolving]
  - Procedural nausea [Recovered/Resolved]

NARRATIVE: CASE EVENT DATE: 201804
